FAERS Safety Report 9693451 (Version 1)
Quarter: 2013Q4

REPORT INFORMATION
  Report Type: Spontaneous
  Country: US (occurrence: US)
  Receive Date: 20131118
  Receipt Date: 20131118
  Transmission Date: 20140711
  Serious: No
  Sender: FDA-Public Use
  Company Number: US-009507513-1310USA009115

PATIENT
  Age: 58 Year
  Sex: Male

DRUGS (5)
  1. VICTRELIS [Suspect]
     Indication: HEPATITIS C
     Dosage: 800 MG, TID
     Route: 048
     Dates: start: 20130710
  2. RIBASPHERE [Concomitant]
  3. PEGASYS [Concomitant]
  4. VIGAMOX [Concomitant]
  5. AMLODIPINE [Concomitant]

REACTIONS (1)
  - Anaemia [Unknown]
